FAERS Safety Report 9034677 (Version 2)
Quarter: 2013Q3

REPORT INFORMATION
  Report Type: Report from Study
  Country: BR (occurrence: BR)
  Receive Date: 20130128
  Receipt Date: 20130815
  Transmission Date: 20140515
  Serious: Yes (Hospitalization)
  Sender: FDA-Public Use
  Company Number: BR-VIIV HEALTHCARE LIMITED-B0841219A

PATIENT
  Age: 48 Year
  Sex: Male
  Weight: 62 kg

DRUGS (6)
  1. MARAVIROC [Suspect]
     Indication: HIV INFECTION
     Dosage: 300MG TWICE PER DAY
     Route: 048
     Dates: start: 20080415
  2. STAVUDINE [Suspect]
     Indication: ANTIRETROVIRAL THERAPY
     Dosage: 60MG TWICE PER DAY
     Dates: start: 20080115
  3. TENOFOVIR [Suspect]
     Indication: ANTIRETROVIRAL THERAPY
     Dosage: 300MG PER DAY
     Dates: start: 200704
  4. RALTEGRAVIR [Suspect]
     Indication: ANTIRETROVIRAL THERAPY
     Dosage: 800MG TWICE PER DAY
     Dates: start: 20080923
  5. LAMIVUDINE-HIV [Suspect]
     Indication: ANTIRETROVIRAL THERAPY
     Dosage: 300MG TWICE PER DAY
     Dates: start: 200704
  6. KALETRA [Suspect]
     Indication: ANTIRETROVIRAL THERAPY
     Dosage: 2TAB TWICE PER DAY
     Dates: start: 20080115

REACTIONS (1)
  - Lipodystrophy acquired [Recovered/Resolved]
